FAERS Safety Report 8495690-0 (Version None)
Quarter: 2012Q3

REPORT INFORMATION
  Report Type: 
  Country: None (occurrence: None)
  Receive Date: 20120709
  Receipt Date: 20120706
  Transmission Date: 20120928
  Serious: No
  Sender: FDA-Public Use
  Company Number: US-PFIZER INC-2012162754

PATIENT
  Sex: Female
  Weight: 81.6 kg

DRUGS (4)
  1. CHANTIX [Suspect]
     Dosage: UNK
     Route: 048
     Dates: start: 20120101, end: 20120101
  2. XANAX [Concomitant]
     Indication: ANXIETY
     Dosage: UNK, 2X/DAY
  3. CYMBALTA [Concomitant]
     Indication: DEPRESSION
     Dosage: UNK
  4. CHANTIX [Suspect]
     Indication: SMOKING CESSATION THERAPY
     Dosage: 0.5 MG, UNK
     Route: 048
     Dates: start: 20120101, end: 20120101

REACTIONS (2)
  - DYSGEUSIA [None]
  - IRRITABILITY [None]
